FAERS Safety Report 4431354-8 (Version None)
Quarter: 2004Q3

REPORT INFORMATION
  Report Type: 
  Country: None (occurrence: None)
  Receive Date: 20040817
  Receipt Date: 20040806
  Transmission Date: 20050211
  Serious: Yes (Other)
  Sender: FDA-Public Use
  Company Number: 2002090228GB

PATIENT

DRUGS (1)
  1. PROSTIN E2 [Suspect]
     Indication: INDUCED LABOUR
     Dosage: VAGINAL
     Route: 067

REACTIONS (2)
  - CONVULSION NEONATAL [None]
  - MATERNAL DRUGS AFFECTING FOETUS [None]
